FAERS Safety Report 6894239-3 (Version None)
Quarter: 2010Q3

REPORT INFORMATION
  Report Type: 
  Country: None (occurrence: None)
  Receive Date: 20100802
  Receipt Date: 20100720
  Transmission Date: 20110219
  Serious: Yes (Hospitalization)
  Sender: FDA-Public Use
  Company Number: CA-ELI_LILLY_AND_COMPANY-CA201007004930

PATIENT
  Sex: Male

DRUGS (8)
  1. FORTEO [Suspect]
     Indication: OSTEOPOROSIS
     Dosage: 20 UG, DAILY (1/D)
     Dates: start: 20100201
  2. PREDNISONE [Concomitant]
  3. METFORMIN [Concomitant]
  4. FLAGYL [Concomitant]
  5. CIPRO [Concomitant]
  6. OXYCET [Concomitant]
  7. CLONAZEPAM [Concomitant]
  8. ANTIBIOTICS [Concomitant]

REACTIONS (4)
  - DIABETES MELLITUS [None]
  - HYPOAESTHESIA [None]
  - SKIN FISSURES [None]
  - VISUAL ACUITY REDUCED [None]
